APPROVED DRUG PRODUCT: OXSORALEN
Active Ingredient: METHOXSALEN
Strength: 1%
Dosage Form/Route: LOTION;TOPICAL
Application: N009048 | Product #002
Applicant: VALEANT PHARMACEUTICALS INTERNATIONAL
Approved: Approved Prior to Jan 1, 1982 | RLD: Yes | RS: No | Type: DISCN